FAERS Safety Report 7290414-7 (Version None)
Quarter: 2011Q1

REPORT INFORMATION
  Report Type: 
  Country: None (occurrence: None)
  Receive Date: 20110214
  Receipt Date: 20110131
  Transmission Date: 20110831
  Serious: Yes (Other)
  Sender: FDA-Public Use
  Company Number: DE-JNJFOC-20110107373

PATIENT
  Sex: Male
  Weight: 100 kg

DRUGS (4)
  1. PALEXIA [Suspect]
     Indication: NEURALGIA
     Dosage: DOSE: 100MG, 2 IN 1 DAY.
     Route: 048
  2. LYRICA [Suspect]
     Indication: PAIN MANAGEMENT
     Route: 065
  3. PALEXIA [Suspect]
     Indication: PAIN MANAGEMENT
     Dosage: DOSE: 100MG, 2 IN 1 DAY.
     Route: 048
  4. MIRTAZAPIN [Concomitant]
     Route: 065

REACTIONS (1)
  - URINARY RETENTION [None]
